FAERS Safety Report 9221936 (Version 2)
Quarter: 2013Q2

REPORT INFORMATION
  Report Type: Spontaneous
  Country: US (occurrence: US)
  Receive Date: 20130410
  Receipt Date: 20130503
  Transmission Date: 20140414
  Serious: No
  Sender: FDA-Public Use
  Company Number: US-PFIZER INC-2013112487

PATIENT
  Age: 58 Year
  Sex: Female
  Weight: 117 kg

DRUGS (3)
  1. ZIPRASIDONE HCL [Suspect]
     Indication: MENTAL DISORDER
     Dosage: 80 MG, 2X/DAY
     Route: 048
     Dates: start: 2009
  2. ZIPRASIDONE HCL [Suspect]
     Dosage: 80 MG, 2X/DAY
     Route: 048
     Dates: start: 201302
  3. ANAFRANIL [Concomitant]
     Dosage: UNK

REACTIONS (4)
  - Headache [Unknown]
  - Pruritus generalised [Unknown]
  - Pruritus [Unknown]
  - Enuresis [Unknown]
